FAERS Safety Report 23691746 (Version 2)
Quarter: 2024Q2

REPORT INFORMATION
  Report Type: Spontaneous
  Country: DE (occurrence: DE)
  Receive Date: 20240401
  Receipt Date: 20240410
  Transmission Date: 20240716
  Serious: Yes (Other)
  Sender: FDA-Public Use
  Company Number: DE-ORGANON-O2403DEU002433

PATIENT
  Age: 69 Year
  Sex: Female

DRUGS (17)
  1. CARBIDOPA\LEVODOPA [Suspect]
     Active Substance: CARBIDOPA\LEVODOPA
     Indication: Parkinson^s disease
     Dosage: 0.5 DOSAGE FORM
     Route: 048
     Dates: start: 2004
  2. ONGENTYS [Suspect]
     Active Substance: OPICAPONE
     Indication: Parkinson^s disease
     Dosage: TOOK 3 TO 4 TABLETS
     Route: 048
  3. PRAMIPEXOLE [Concomitant]
     Active Substance: PRAMIPEXOLE\PRAMIPEXOLE DIHYDROCHLORIDE
     Dosage: 0.52 RETARD 1X DAILY
     Route: 065
  4. AMANTADINE [Concomitant]
     Active Substance: AMANTADINE
     Dosage: 1A PHARMA 100, 2X DAILY
     Route: 065
  5. BENSERAZIDE HYDROCHLORIDE\LEVODOPA [Concomitant]
     Active Substance: BENSERAZIDE HYDROCHLORIDE\LEVODOPA
     Dosage: 1.5 TABLETS MADOPATE, 5 TO 6 TIMES A DAY. IN THE MORNING ALWAYS HALF, IN THE AFTERNOON 1 TO 3/4. 3 T
     Route: 048
  6. BENSERAZIDE HYDROCHLORIDE\LEVODOPA [Concomitant]
     Active Substance: BENSERAZIDE HYDROCHLORIDE\LEVODOPA
     Dosage: 125MG 4 TABLETS DIVIDED INTO 6 TIMES
     Route: 048
  7. BENSERAZIDE HYDROCHLORIDE\LEVODOPA [Concomitant]
     Active Substance: BENSERAZIDE HYDROCHLORIDE\LEVODOPA
     Dosage: THIS REACTS MORE QUICKLY. LT CAN BE GIVEN IN LIQUID. ESPECIALLY IF IT TAKES LONGER
     Route: 065
  8. DEPANTO [Concomitant]
     Indication: Abdominal discomfort
     Dosage: UNK
     Route: 065
  9. DOPPELHERZ [Concomitant]
     Dosage: UNK
     Route: 065
  10. FOLIC ACID [Concomitant]
     Active Substance: FOLIC ACID
     Dosage: UNK
     Route: 065
  11. OMNIFLORA [Concomitant]
     Indication: Abnormal faeces
     Dosage: UNK
     Route: 065
  12. CARBIMAZOLE [Concomitant]
     Active Substance: CARBIMAZOLE
     Indication: Thyroid gland injury
     Dosage: 5MG 2X HALF
     Route: 065
  13. CANDESARTAN [Concomitant]
     Active Substance: CANDESARTAN
     Indication: Cardiac disorder
     Dosage: HALF TABLET. 4MG DOSE
     Route: 065
  14. IBUPROFEN [Concomitant]
     Active Substance: IBUPROFEN
     Dosage: HALF A 600MG TABLET 1X PER WEEK
     Route: 048
  15. CHOLECALCIFEROL [Concomitant]
     Active Substance: CHOLECALCIFEROL
     Dosage: 20000 UNITS
     Route: 065
  16. ALENDRONIC ACID [Concomitant]
     Active Substance: ALENDRONIC ACID
     Indication: Osteoporosis
     Dosage: 1X PER WEEK
     Route: 065
  17. APOMORPHINE [Concomitant]
     Active Substance: APOMORPHINE
     Dosage: BOOSTER IF SHE IS VERY DIFFICULT TO MOVE.
     Route: 065

REACTIONS (9)
  - Jaw operation [Not Recovered/Not Resolved]
  - Salivary hypersecretion [Not Recovered/Not Resolved]
  - Hypoaesthesia oral [Not Recovered/Not Resolved]
  - Psychomotor hyperactivity [Not Recovered/Not Resolved]
  - Aggression [Not Recovered/Not Resolved]
  - Pain [Not Recovered/Not Resolved]
  - Scoliosis [Not Recovered/Not Resolved]
  - Short stature [Not Recovered/Not Resolved]
  - Wrong technique in product usage process [Unknown]

NARRATIVE: CASE EVENT DATE: 20170101
